FAERS Safety Report 9011997 (Version 1)
Quarter: 2012Q4

REPORT INFORMATION
  Report Type: Spontaneous
  Country: US (occurrence: None)
  Receive Date: 20121228
  Receipt Date: 20121228
  Transmission Date: 20130627
  Serious: Yes (Other)
  Sender: FDA-Public Use
  Company Number: PRED20120075

PATIENT
  Age: 62 Year
  Sex: Male

DRUGS (5)
  1. PREDNISONE TABLETS USP 5MG (NO PREF. NAME) [Suspect]
     Route: 048
  2. PREDNISONE TABLETS USP 5MG (NO PREF. NAME) [Suspect]
     Route: 048
  3. MYCOPHENOLATE MOFETIL (MYCOPHENOLATE MOFETIL) [Suspect]
  4. TACROLIMUS (TACROLIMUS) [Suspect]
  5. TACROLIMUS (TACROLIMUS) [Suspect]

REACTIONS (2)
  - Post transplant lymphoproliferative disorder [None]
  - Diffuse large B-cell lymphoma [None]
